FAERS Safety Report 7222597-9 (Version None)
Quarter: 2011Q1

REPORT INFORMATION
  Report Type: 
  Country: None (occurrence: None)
  Receive Date: 20110103
  Receipt Date: 20101215
  Transmission Date: 20110831
  Serious: Yes (Hospitalization)
  Sender: FDA-Public Use
  Company Number: FKO201000581

PATIENT
  Age: 69 Year
  Sex: Female

DRUGS (14)
  1. CAPECITABINE [Suspect]
     Indication: COLON CANCER STAGE II
     Dosage: 3300 MG, ORAL
     Route: 048
     Dates: start: 20101126, end: 20101129
  2. LANSOPRAZOLE [Concomitant]
  3. QVAR [Concomitant]
  4. SIMVASTATIN [Concomitant]
  5. TRAMADOL HYDROCHLORIDE [Concomitant]
  6. ALENDRONIC ACID [Concomitant]
  7. BENDROFLUMETHIAZIDE [Concomitant]
  8. ALBUTEROL [Concomitant]
  9. CITALOPRAM [Concomitant]
  10. OXALIPLATIN [Suspect]
     Indication: COLON CANCER STAGE II
     Dosage: 220 MG, INTRAVENOUS  (NOT OTHERWISE SPECIFIED)
     Route: 042
     Dates: start: 20101126, end: 20101126
  11. BECONASE [Concomitant]
  12. CALCEOS (LEKOVIT CA) [Concomitant]
  13. PARACETAMOL [Concomitant]
  14. LISINOPRIL [Concomitant]

REACTIONS (6)
  - FATIGUE [None]
  - CEREBROVASCULAR ACCIDENT [None]
  - HEMIPARESIS [None]
  - HEMISENSORY NEGLECT [None]
  - NEUROPATHY PERIPHERAL [None]
  - MEMORY IMPAIRMENT [None]
